FAERS Safety Report 6298809-5 (Version None)
Quarter: 2009Q3

REPORT INFORMATION
  Report Type: 
  Country: None (occurrence: None)
  Receive Date: 20090806
  Receipt Date: 20090724
  Transmission Date: 20100115
  Serious: Yes (Other)
  Sender: FDA-Public Use
  Company Number: FI-PFIZER INC-2009245650

PATIENT
  Age: 29 Year

DRUGS (3)
  1. ZELDOX [Suspect]
     Indication: PSYCHOTIC DISORDER
     Dosage: 40 MG, 2X/DAY
     Route: 048
     Dates: start: 20090713
  2. CLOZAPINE [Suspect]
     Dosage: 50MG 1X/DAY, 150MG 1X/DAY
     Route: 048
     Dates: end: 20090622
  3. DIAPAM [Concomitant]
     Dosage: UNK

REACTIONS (3)
  - HAEMOGLOBIN DECREASED [None]
  - NEUTROPENIA [None]
  - WHITE BLOOD CELL COUNT DECREASED [None]
